FAERS Safety Report 6241292-6 (Version None)
Quarter: 2009Q2

REPORT INFORMATION
  Report Type: 
  Country: None (occurrence: None)
  Receive Date: 20090623
  Receipt Date: 20090617
  Transmission Date: 20091009
  Serious: Yes (Other)
  Sender: FDA-Public Use
  Company Number: AT-BRISTOL-MYERS SQUIBB COMPANY-14668347

PATIENT
  Age: 67 Year
  Sex: Female

DRUGS (12)
  1. CYCLOPHOSPHAMIDE [Suspect]
     Indication: HODGKIN'S DISEASE
  2. BLEOMYCIN SULFATE [Suspect]
     Indication: HODGKIN'S DISEASE
  3. ETOPOSIDE [Suspect]
     Indication: HODGKIN'S DISEASE
  4. DOXORUBICIN HCL [Suspect]
     Indication: HODGKIN'S DISEASE
  5. IFOSFAMIDE [Suspect]
     Indication: HODGKIN'S DISEASE
  6. MESNA [Suspect]
     Indication: HODGKIN'S DISEASE
  7. VINCRISTINE SULFATE [Suspect]
     Indication: HODGKIN'S DISEASE
  8. DACARBAZINE [Suspect]
     Indication: HODGKIN'S DISEASE
  9. PROCARBAZINE [Suspect]
     Indication: HODGKIN'S DISEASE
  10. PREDNISOLONE [Suspect]
     Indication: HODGKIN'S DISEASE
  11. VINBLASTINE SULFATE [Suspect]
     Indication: HODGKIN'S DISEASE
  12. METHOTREXATE [Suspect]
     Indication: HODGKIN'S DISEASE

REACTIONS (1)
  - DIFFUSE LARGE B-CELL LYMPHOMA [None]
